FAERS Safety Report 4982097-3 (Version None)
Quarter: 2006Q2

REPORT INFORMATION
  Report Type: 
  Country: None (occurrence: None)
  Receive Date: 20060419
  Receipt Date: 20060330
  Transmission Date: 20061013
  Serious: Yes (Death)
  Sender: FDA-Public Use
  Company Number: US200604000158

PATIENT
  Age: 93 Year
  Sex: Female

DRUGS (2)
  1. FORTEO [Suspect]
     Indication: OSTEOPOROSIS
     Dosage: 20 UG
  2. FORTEO [Concomitant]

REACTIONS (3)
  - PACEMAKER COMPLICATION [None]
  - PERIPHERAL CIRCULATORY FAILURE [None]
  - PHARMACEUTICAL PRODUCT COMPLAINT [None]
